FAERS Safety Report 20942719 (Version 1)
Quarter: 2022Q2

REPORT INFORMATION
  Report Type: Report from Study
  Country: DE (occurrence: DE)
  Receive Date: 20220610
  Receipt Date: 20220610
  Transmission Date: 20220721
  Serious: Yes (Other)
  Sender: FDA-Public Use
  Company Number: DE-CELLTRION INC.-2022DE008433

PATIENT

DRUGS (4)
  1. TRASTUZUMAB [Suspect]
     Active Substance: TRASTUZUMAB
     Indication: Breast cancer
     Dosage: 600 MILLIGRAM (DATE OF LAST APPLICATION PRIOR EVENT ON 27/OCT/2021)
     Route: 041
  2. CAPECITABINE [Suspect]
     Active Substance: CAPECITABINE
     Indication: Breast cancer
     Dosage: 1000 MILLIGRAM, QD (DATE OF LAST APPLICATION PRIOR EVENT ON 09/NOV/2021)
     Route: 048
     Dates: start: 20210830, end: 20211114
  3. RAMIPRIL [Concomitant]
     Active Substance: RAMIPRIL
     Dosage: 2.5 MILLIGRAM, EVERY 0.5 DAY
     Route: 048
  4. AMINOPHYLLINE\QUININE SULFATE [Concomitant]
     Active Substance: AMINOPHYLLINE\QUININE SULFATE
     Dosage: EVERY 0.5 DAY
     Route: 048

REACTIONS (2)
  - Skin necrosis [Unknown]
  - Overdose [Unknown]

NARRATIVE: CASE EVENT DATE: 20211109
